FAERS Safety Report 5209392-7 (Version None)
Quarter: 2006Q4

REPORT INFORMATION
  Report Type: 
  Country: None (occurrence: None)
  Receive Date: 20061101
  Receipt Date: 20060811
  Transmission Date: 20070319
  Serious: No
  Sender: FDA-Public Use
  Company Number: 2006PV019272

PATIENT
  Sex: Male
  Weight: 117.9352 kg

DRUGS (3)
  1. SYMLIN [Suspect]
     Indication: DIABETES MELLITUS NON-INSULIN-DEPENDENT
     Dosage: 120 MCG; SC;  60 MCG; SC
     Route: 058
     Dates: start: 20060723, end: 20060727
  2. SYMLIN [Suspect]
     Indication: DIABETES MELLITUS NON-INSULIN-DEPENDENT
     Dosage: 120 MCG; SC;  60 MCG; SC
     Route: 058
     Dates: start: 20060727
  3. HUMALOG MIX 75/25 [Concomitant]

REACTIONS (1)
  - BLOOD GLUCOSE INCREASED [None]
